FAERS Safety Report 16077815 (Version 1)
Quarter: 2019Q1

REPORT INFORMATION
  Report Type: Spontaneous
  Country: US (occurrence: US)
  Receive Date: 20190214
  Receipt Date: 20190214
  Transmission Date: 20190418
  Serious: No
  Sender: FDA-Public Use
  Company Number: None

PATIENT
  Age: 36 Year
  Sex: Female

DRUGS (1)
  1. BENLYSTA [Suspect]
     Active Substance: BELIMUMAB
     Dates: start: 2018

REACTIONS (4)
  - Systemic lupus erythematosus [None]
  - Injection site erythema [None]
  - Injection site pruritus [None]
  - Therapy non-responder [None]

NARRATIVE: CASE EVENT DATE: 20190214
